FAERS Safety Report 10518708 (Version 1)
Quarter: 2014Q4

REPORT INFORMATION
  Report Type: Spontaneous
  Country: US (occurrence: US)
  Receive Date: 20141015
  Receipt Date: 20141015
  Transmission Date: 20150528
  Serious: Yes (Other)
  Sender: FDA-Public Use
  Company Number: US-LEO PHARMA-221158

PATIENT
  Age: 61 Year
  Sex: Female

DRUGS (4)
  1. DAIVOBET [Suspect]
     Active Substance: BETAMETHASONE DIPROPIONATE\CALCIPOTRIENE
     Indication: PSORIASIS
  2. DAIVOBET [Suspect]
     Active Substance: BETAMETHASONE DIPROPIONATE\CALCIPOTRIENE
     Indication: PSORIASIS
  3. HYDROCHLORTHIAZIDE [Concomitant]
     Active Substance: HYDROCHLOROTHIAZIDE
     Indication: HYPERTENSION
     Route: 048
  4. DAIVOBET [Suspect]
     Active Substance: BETAMETHASONE DIPROPIONATE\CALCIPOTRIENE
     Indication: NAIL PSORIASIS
     Route: 061
     Dates: start: 20130408, end: 20130408

REACTIONS (8)
  - Urticaria [Recovering/Resolving]
  - Periorbital oedema [Recovered/Resolved]
  - Hypersensitivity [Recovering/Resolving]
  - Lip swelling [Recovered/Resolved]
  - Rash [Recovered/Resolved]
  - Drug administered at inappropriate site [Recovering/Resolving]
  - Swelling face [Recovering/Resolving]
  - Paraesthesia oral [Recovering/Resolving]

NARRATIVE: CASE EVENT DATE: 20130408
